FAERS Safety Report 5947302-5 (Version None)
Quarter: 2008Q4

REPORT INFORMATION
  Report Type: 
  Country: None (occurrence: None)
  Receive Date: 20081106
  Receipt Date: 20081030
  Transmission Date: 20090506
  Serious: Yes (Other)
  Sender: FDA-Public Use
  Company Number: OSCN-PR-0810S-0590

PATIENT
  Sex: Male

DRUGS (7)
  1. OMNISCAN [Suspect]
     Dosage: SINGLE DOSE
     Dates: start: 20060221, end: 20060221
  2. OMNISCAN [Suspect]
     Dosage: SINGLE DOSE
     Dates: start: 20060225, end: 20060225
  3. OMNISCAN [Suspect]
     Dosage: SINGLE DOSE
     Dates: start: 20060306, end: 20060306
  4. OMNISCAN [Suspect]
     Dosage: SINGLE DOSE
     Dates: start: 20060327, end: 20060327
  5. OMNISCAN [Suspect]
     Dosage: SINGLE DOSE
     Dates: start: 20060330, end: 20060330
  6. OMNISCAN [Suspect]
     Dosage: SINGLE DOSE
     Dates: start: 20060828, end: 20060828
  7. OMNISCAN [Suspect]
     Dosage: SINGLE DOSE
     Dates: start: 20070303, end: 20070303

REACTIONS (1)
  - NEPHROGENIC SYSTEMIC FIBROSIS [None]
